FAERS Safety Report 18329975 (Version 1)
Quarter: 2020Q3

REPORT INFORMATION
  Report Type: Report from Study
  Country: US (occurrence: US)
  Receive Date: 20200930
  Receipt Date: 20200930
  Transmission Date: 20201103
  Serious: Yes (Other)
  Sender: FDA-Public Use
  Company Number: US-PFIZER INC-2020376924

PATIENT
  Age: 19 Year
  Sex: Female

DRUGS (11)
  1. PHENYTOIN. [Interacting]
     Active Substance: PHENYTOIN
     Dosage: UNK
  2. HYDROXYZINE PAMOATE. [Interacting]
     Active Substance: HYDROXYZINE PAMOATE
     Dosage: UNK
  3. DEXTROSE. [Concomitant]
     Active Substance: DEXTROSE
     Dosage: 1,000 ML/M2 OF 5% DEXTROSE IN 1/3 NORMAL SALINE
  4. FUROSEMIDE. [Suspect]
     Active Substance: FUROSEMIDE
     Dosage: UNK
  5. MESNA. [Interacting]
     Active Substance: MESNA
     Indication: GLIOBLASTOMA MULTIFORME
     Dosage: 400 MG/M2, DAILY
  6. ACETAMINOPHEN. [Interacting]
     Active Substance: ACETAMINOPHEN
     Dosage: UNK
  7. DEXAMETHASONE. [Interacting]
     Active Substance: DEXAMETHASONE
     Dosage: UNK
  8. METOCLOPRAMIDE HCL [Interacting]
     Active Substance: METOCLOPRAMIDE HYDROCHLORIDE
     Dosage: UNK
  9. DIPHENHYDRAMINE HCL [Interacting]
     Active Substance: DIPHENHYDRAMINE HYDROCHLORIDE
     Dosage: UNK
  10. PHENOBARBITAL. [Interacting]
     Active Substance: PHENOBARBITAL
     Dosage: UNK
  11. IFOSFAMIDE. [Interacting]
     Active Substance: IFOSFAMIDE
     Indication: GLIOBLASTOMA MULTIFORME
     Dosage: 1600 MG/M2, DAILY (DAILY FOR FIVE DAYS, ADMINISTERED AT 21? TO 28?DAY INTERVALS)
     Route: 042

REACTIONS (2)
  - Drug interaction [Recovering/Resolving]
  - Neurotoxicity [Recovering/Resolving]
